FAERS Safety Report 7302398-3 (Version None)
Quarter: 2011Q1

REPORT INFORMATION
  Report Type: 
  Country: None (occurrence: None)
  Receive Date: 20110218
  Receipt Date: 20100830
  Transmission Date: 20110831
  Serious: No
  Sender: FDA-Public Use
  Company Number: US-ASTRAZENECA-2010SE40917

PATIENT
  Sex: Female

DRUGS (2)
  1. ACCOLATE [Suspect]
     Indication: ASTHMA
     Route: 048
     Dates: start: 19960101
  2. ATENOLOL [Concomitant]

REACTIONS (2)
  - MUSCLE SPASMS [None]
  - BRONCHITIS CHRONIC [None]
